FAERS Safety Report 9789586 (Version 1)
Quarter: 2013Q4

REPORT INFORMATION
  Report Type: Report from Study
  Country: US (occurrence: US)
  Receive Date: 20131231
  Receipt Date: 20131231
  Transmission Date: 20140711
  Serious: Yes (Other)
  Sender: FDA-Public Use
  Company Number: US-ROCHE-1318941

PATIENT
  Sex: Male

DRUGS (2)
  1. BONIVA [Suspect]
     Indication: OSTEOPOROSIS
     Route: 048
     Dates: start: 2008
  2. PREDNISONE [Concomitant]
     Route: 065

REACTIONS (6)
  - Spinal compression fracture [Unknown]
  - Bone density decreased [Unknown]
  - Sarcoidosis [Unknown]
  - Glaucoma [Unknown]
  - Pruritus [Recovered/Resolved]
  - Hypercalcaemia [Unknown]
